FAERS Safety Report 8371268-4 (Version None)
Quarter: 2012Q2

REPORT INFORMATION
  Report Type: 
  Country: None (occurrence: None)
  Receive Date: 20120517
  Receipt Date: 20120510
  Transmission Date: 20120825
  Serious: Yes (Hospitalization)
  Sender: FDA-Public Use
  Company Number: 2012ST000455

PATIENT
  Age: 7 Year
  Sex: Female
  Weight: 39 kg

DRUGS (9)
  1. VELCADE [Suspect]
     Indication: ACUTE LYMPHOCYTIC LEUKAEMIA
     Dosage: 1.3 MG/M**2; IV
     Route: 042
     Dates: start: 20120228, end: 20120417
  2. DOXORUBICIN HCL [Suspect]
     Indication: ACUTE LYMPHOCYTIC LEUKAEMIA
     Dosage: 60 MG/M**2;QD;IV
     Route: 042
     Dates: start: 20120228, end: 20120301
  3. ONCASPAR [Suspect]
     Indication: ACUTE LYMPHOCYTIC LEUKAEMIA
     Dosage: 2500 IU/M**2; IV
     Route: 042
     Dates: start: 20120228, end: 20120322
  4. CYTARABINE [Suspect]
     Indication: ACUTE LYMPHOCYTIC LEUKAEMIA
     Dosage: 70 MG;X1;INTH
     Route: 037
     Dates: start: 20120228, end: 20120228
  5. VINCRISTINE [Suspect]
     Indication: ACUTE LYMPHOCYTIC LEUKAEMIA
     Dosage: 1.5 MG/M**2; IV
     Route: 042
     Dates: start: 20120228, end: 20120322
  6. PREDNISONE TAB [Suspect]
     Indication: ACUTE LYMPHOCYTIC LEUKAEMIA
     Dosage: 20 MG/M**2;QD;PO
     Route: 048
     Dates: start: 20120228, end: 20120301
  7. METHOTREXATE [Suspect]
     Indication: ACUTE LYMPHOCYTIC LEUKAEMIA
     Dosage: 500 MG/M**2; INTH; 4500 MG/M**2; IV
     Route: 037
     Dates: end: 20120410
  8. METHOTREXATE [Suspect]
     Indication: ACUTE LYMPHOCYTIC LEUKAEMIA
     Dosage: 500 MG/M**2; INTH; 4500 MG/M**2; IV
     Route: 037
     Dates: start: 20120228
  9. METHOTREXATE [Suspect]
     Indication: ACUTE LYMPHOCYTIC LEUKAEMIA
     Dosage: 500 MG/M**2; INTH; 4500 MG/M**2; IV
     Route: 037
     Dates: start: 20120410, end: 20120414

REACTIONS (5)
  - DECREASED APPETITE [None]
  - NAUSEA [None]
  - HYPERTRIGLYCERIDAEMIA [None]
  - HYPOPHAGIA [None]
  - RETCHING [None]
